FAERS Safety Report 10163194 (Version 2)
Quarter: 2014Q2

REPORT INFORMATION
  Report Type: Report from Study
  Country: CA (occurrence: CA)
  Receive Date: 20140509
  Receipt Date: 20140509
  Transmission Date: 20141212
  Serious: Yes (Hospitalization)
  Sender: FDA-Public Use
  Company Number: CA-CELGENEUS-028-10004-13011014

PATIENT
  Age: 40 Year
  Sex: Male
  Weight: 138.92 kg

DRUGS (25)
  1. CC-10004 [Suspect]
     Indication: PSORIASIS
     Dosage: 60 MILLIGRAM
     Route: 048
     Dates: start: 20110725
  2. CC-10004 [Suspect]
     Dosage: 60 MILLIGRAM
     Route: 048
     Dates: start: 20121217, end: 20121218
  3. COVERSYL [Concomitant]
     Indication: HYPERTENSION
     Dosage: 2 MILLIGRAM
     Route: 048
     Dates: start: 20111030
  4. COVERSYL [Concomitant]
     Dosage: 4 MILLIGRAM
     Route: 048
  5. TECTA [Concomitant]
     Indication: GASTROOESOPHAGEAL REFLUX DISEASE
     Dosage: 40 MILLIGRAM
     Route: 048
     Dates: start: 20111116
  6. IRON BISGLYCINATE [Concomitant]
     Indication: ANAEMIA
     Dosage: 28 MILLIGRAM
     Route: 048
     Dates: start: 20120623
  7. AZITHROMYCIN [Concomitant]
     Indication: ATYPICAL PNEUMONIA
     Route: 041
     Dates: start: 20121224, end: 20121229
  8. FERROUS GLUCONATE [Concomitant]
     Indication: PRODUCT USED FOR UNKNOWN INDICATION
     Dosage: 600 MILLIGRAM
     Route: 048
  9. ASA [Concomitant]
     Indication: ATRIAL FIBRILLATION
     Dosage: 81 MILLIGRAM
     Route: 048
     Dates: start: 201301
  10. METOPROLOL [Concomitant]
     Indication: ATRIAL FIBRILLATION
     Dosage: 50 MILLIGRAM
     Route: 048
     Dates: start: 201301
  11. PERINDOPRIL [Concomitant]
     Indication: PRODUCT USED FOR UNKNOWN INDICATION
     Dosage: 4 MILLIGRAM
     Route: 048
  12. PORTABLE IV ANTIBIOTHERAPY [Concomitant]
     Indication: PRODUCT USED FOR UNKNOWN INDICATION
     Route: 041
     Dates: end: 20130217
  13. VANCOMYCIN [Concomitant]
     Indication: PNEUMONIA STAPHYLOCOCCAL
     Route: 041
  14. CEFTRIAXONE [Concomitant]
     Indication: PNEUMONIA STAPHYLOCOCCAL
     Route: 041
  15. MAVIK [Concomitant]
     Indication: HYPERTENSION
     Route: 065
  16. BLOOD [Concomitant]
     Indication: ANAEMIA
     Dosage: 2 UNITS
     Route: 041
     Dates: start: 201212, end: 201212
  17. LASIX [Concomitant]
     Indication: FLUID RETENTION
     Route: 041
  18. ACETAMINOPHEN [Concomitant]
     Indication: PRODUCT USED FOR UNKNOWN INDICATION
     Dosage: 4000 MILLIGRAM
     Route: 048
  19. FRAGMIN [Concomitant]
     Indication: PRODUCT USED FOR UNKNOWN INDICATION
     Dosage: 18,000 UNITS
     Route: 058
     Dates: end: 20121228
  20. GRAVOL [Concomitant]
     Indication: PRODUCT USED FOR UNKNOWN INDICATION
     Dosage: 200 MILLIGRAM
     Route: 041
  21. FERROUS FUMARATE [Concomitant]
     Indication: PRODUCT USED FOR UNKNOWN INDICATION
     Dosage: 600 MILLIGRAM
     Route: 065
  22. HYDROCODONE [Concomitant]
     Indication: PRODUCT USED FOR UNKNOWN INDICATION
     Dosage: 40 MILLIGRAM
     Route: 065
  23. IBUPROFEN [Concomitant]
     Indication: PRODUCT USED FOR UNKNOWN INDICATION
     Dosage: 800 MILLIGRAM
     Route: 065
  24. POTASSIUM [Concomitant]
     Indication: PRODUCT USED FOR UNKNOWN INDICATION
     Dosage: 24 MILLIMOLE
     Route: 048
  25. WARFARIN [Concomitant]
     Indication: ATRIAL FIBRILLATION
     Dosage: 5 MILLIGRAM
     Route: 065

REACTIONS (1)
  - Pneumonia staphylococcal [Recovered/Resolved]
